FAERS Safety Report 20838287 (Version 1)
Quarter: 2022Q2

REPORT INFORMATION
  Report Type: Spontaneous
  Country: US (occurrence: US)
  Receive Date: 20220517
  Receipt Date: 20220517
  Transmission Date: 20220721
  Serious: No
  Sender: FDA-Public Use
  Company Number: US-ALNYLAM PHARMACEUTICALS, INC.-ALN-2022-001606

PATIENT

DRUGS (1)
  1. ONPATTRO [Suspect]
     Active Substance: PATISIRAN SODIUM
     Indication: Product used for unknown indication
     Dosage: UNK, Q3W
     Route: 042
     Dates: start: 20220428

REACTIONS (8)
  - Infusion related reaction [Unknown]
  - Abdominal pain upper [Unknown]
  - Back pain [Unknown]
  - Palpitations [Unknown]
  - Blood pressure increased [Unknown]
  - Confusional state [Unknown]
  - Anxiety [Unknown]
  - Product administration interrupted [Unknown]

NARRATIVE: CASE EVENT DATE: 20220428
